FAERS Safety Report 6871127-X (Version None)
Quarter: 2010Q3

REPORT INFORMATION
  Report Type: 
  Country: None (occurrence: None)
  Receive Date: 20100723
  Receipt Date: 20100713
  Transmission Date: 20110219
  Serious: Yes (Hospitalization, Other)
  Sender: FDA-Public Use
  Company Number: US-PFIZER INC-2010039034

PATIENT
  Sex: Female
  Weight: 69.841 kg

DRUGS (6)
  1. ZOLOFT [Suspect]
     Indication: DEPRESSION
     Dosage: 50 MG, DAILY
     Dates: start: 20050101
  2. PRISTIQ [Suspect]
     Indication: DEPRESSION
     Dosage: 50 MG, DAILY
     Dates: start: 20091101, end: 20100321
  3. WELLBUTRIN [Suspect]
     Indication: DEPRESSION
     Dosage: UNK
  4. CYMBALTA [Suspect]
     Indication: DEPRESSION
     Dosage: UNK
  5. SERTRALINE [Suspect]
     Indication: DEPRESSION
     Dosage: 50 MG, DAILY
  6. OXYBUTYN [Concomitant]
     Dosage: 5 MG, DAILY

REACTIONS (15)
  - DEHYDRATION [None]
  - DEPRESSION [None]
  - DRUG INEFFECTIVE [None]
  - HYPERSENSITIVITY [None]
  - HYPOTHYROIDISM [None]
  - LIBIDO DECREASED [None]
  - OROPHARYNGEAL PAIN [None]
  - PAIN IN EXTREMITY [None]
  - PLEURISY [None]
  - PNEUMONIA [None]
  - PRURITUS [None]
  - RASH [None]
  - STRESS [None]
  - THROAT IRRITATION [None]
  - WITHDRAWAL SYNDROME [None]
